FAERS Safety Report 10551717 (Version 3)
Quarter: 2015Q1

REPORT INFORMATION
  Report Type: Spontaneous
  Country: US (occurrence: US)
  Receive Date: 20141029
  Receipt Date: 20150129
  Transmission Date: 20150720
  Serious: No
  Sender: FDA-Public Use
  Company Number: US-PFIZER INC-2014294435

PATIENT
  Age: 71 Year
  Sex: Male
  Weight: 86 kg

DRUGS (5)
  1. SOTALOL. [Concomitant]
     Active Substance: SOTALOL
     Indication: HEART RATE IRREGULAR
     Dosage: 40 MG (1/2 TABLET OF A 80 MG), 1X/DAY
     Route: 048
     Dates: start: 201405, end: 201409
  2. INLYTA [Suspect]
     Active Substance: AXITINIB
     Dosage: 5 MG ONCE A DAY ON ALTERNATE DAYS
     Dates: start: 201409
  3. SOTALOL. [Concomitant]
     Active Substance: SOTALOL
     Dosage: UNK
     Dates: start: 201411
  4. AMLODIPINE [Concomitant]
     Active Substance: AMLODIPINE BESYLATE
     Indication: BLOOD PRESSURE ABNORMAL
     Dosage: 5 MG, 1X/DAY
     Dates: start: 201406
  5. INLYTA [Suspect]
     Active Substance: AXITINIB
     Indication: RENAL CELL CARCINOMA
     Dosage: 5 MG TWICE A DAY EVERY OTHER DAY
     Route: 048
     Dates: start: 201409

REACTIONS (2)
  - Fatigue [Not Recovered/Not Resolved]
  - Dry skin [Not Recovered/Not Resolved]

NARRATIVE: CASE EVENT DATE: 201409
